FAERS Safety Report 5628705-5 (Version None)
Quarter: 2008Q1

REPORT INFORMATION
  Report Type: 
  Country: None (occurrence: None)
  Receive Date: 20080215
  Receipt Date: 20080206
  Transmission Date: 20080703
  Serious: Yes (Other)
  Sender: FDA-Public Use
  Company Number: US-PFIZER INC-2008012364

PATIENT
  Age: 32 Year
  Sex: Female

DRUGS (3)
  1. CHANTIX [Suspect]
     Indication: SMOKING CESSATION THERAPY
     Dosage: DAILY DOSE:.5MG-FREQ:DAILY
     Dates: start: 20080101, end: 20080101
  2. KEPPRA [Concomitant]
  3. ZYPREXA [Concomitant]

REACTIONS (9)
  - ACTIVITIES OF DAILY LIVING IMPAIRED [None]
  - DYSPNOEA [None]
  - EYE DISORDER [None]
  - HYPERSENSITIVITY [None]
  - ILL-DEFINED DISORDER [None]
  - IRRITABILITY [None]
  - OESOPHAGEAL DISORDER [None]
  - SMOKER [None]
  - VISION BLURRED [None]
